FAERS Safety Report 12735736 (Version 1)
Quarter: 2016Q3

REPORT INFORMATION
  Report Type: Spontaneous
  Country: US (occurrence: US)
  Receive Date: 20160913
  Receipt Date: 20160913
  Transmission Date: 20161109
  Serious: No
  Sender: FDA-Public Use
  Company Number: US-009507513-1608USA015796

PATIENT
  Age: 26 Year
  Sex: Female
  Weight: 53.52 kg

DRUGS (1)
  1. NEXPLANON [Suspect]
     Active Substance: ETONOGESTREL
     Indication: MIGRAINE WITH AURA
     Dosage: ONE ROD EVERY THREE YEARS
     Route: 059
     Dates: start: 201506

REACTIONS (5)
  - Complication associated with device [Not Recovered/Not Resolved]
  - Device deployment issue [Not Recovered/Not Resolved]
  - Vaginal haemorrhage [Unknown]
  - Product use issue [Unknown]
  - Difficulty removing drug implant [Not Recovered/Not Resolved]

NARRATIVE: CASE EVENT DATE: 201506
